FAERS Safety Report 17487581 (Version 1)
Quarter: 2020Q1

REPORT INFORMATION
  Report Type: Spontaneous
  Country: US (occurrence: US)
  Receive Date: 20200219
  Receipt Date: 20200219
  Transmission Date: 20200409
  Serious: Yes (Other)
  Sender: FDA-Public Use
  Company Number: None

PATIENT
  Age: 27 Year
  Sex: Male
  Weight: 74.25 kg

DRUGS (12)
  1. ZOMACTON [Suspect]
     Active Substance: SOMATROPIN
     Indication: BLOOD TESTOSTERONE DECREASED
     Dosage: ?          QUANTITY:6 VIALS;?
     Route: 058
     Dates: start: 20190107, end: 20190707
  2. VITAMIN D [Concomitant]
     Active Substance: VITAMIN D NOS
  3. ZOMACTON [Suspect]
     Active Substance: SOMATROPIN
     Indication: ARTHRALGIA
     Dosage: ?          QUANTITY:6 VIALS;?
     Route: 058
     Dates: start: 20190107, end: 20190707
  4. OXANDROLONE. [Suspect]
     Active Substance: OXANDROLONE
  5. TESTOSTERONE. [Suspect]
     Active Substance: TESTOSTERONE
  6. FINASTRIDE [Concomitant]
     Active Substance: FINASTERIDE
  7. BIOTIN [Concomitant]
     Active Substance: BIOTIN
  8. VITAMIN C [Concomitant]
     Active Substance: ASCORBIC ACID
  9. PYGEUM [Concomitant]
     Active Substance: PYGEUM
  10. EXEMESTANE. [Suspect]
     Active Substance: EXEMESTANE
  11. FISH OIL [Concomitant]
     Active Substance: FISH OIL
  12. FRUIT PALM EXTRACT [Concomitant]

REACTIONS (3)
  - Suspected counterfeit product [None]
  - Alopecia [None]
  - Hormone level abnormal [None]

NARRATIVE: CASE EVENT DATE: 20190107
